FAERS Safety Report 17564278 (Version 1)
Quarter: 2020Q1

REPORT INFORMATION
  Report Type: Spontaneous
  Country: None (occurrence: None)
  Receive Date: 20200320
  Receipt Date: 20200320
  Transmission Date: 20200409
  Serious: Yes (Other)
  Sender: FDA-Public Use
  Company Number: MICRO LABS LIMITED-ML2020-00749

PATIENT
  Age: 9 Year
  Sex: Female

DRUGS (2)
  1. FORMOTEROL [Suspect]
     Active Substance: FORMOTEROL
     Indication: NASOPHARYNGITIS
     Dosage: SYSTEMIC
  2. MEFENAMIC ACID. [Suspect]
     Active Substance: MEFENAMIC ACID
     Indication: NASOPHARYNGITIS
     Dosage: SYSTEMIC

REACTIONS (3)
  - Choroidal effusion [Recovered/Resolved]
  - Acute myopia [Recovered/Resolved]
  - Angle closure glaucoma [Recovered/Resolved]
